FAERS Safety Report 21649773 (Version 1)
Quarter: 2022Q4

REPORT INFORMATION
  Report Type: Spontaneous
  Country: ES (occurrence: ES)
  Receive Date: 20221128
  Receipt Date: 20221128
  Transmission Date: 20230113
  Serious: Yes (Hospitalization)
  Sender: FDA-Public Use
  Company Number: None

PATIENT
  Age: 77 Year
  Sex: Male

DRUGS (12)
  1. LEVOFLOXACIN [Suspect]
     Active Substance: LEVOFLOXACIN
     Indication: Bronchitis
     Dosage: 500 MG, QD
     Route: 048
     Dates: start: 20220803, end: 20220807
  2. FUROSEMIDE [Concomitant]
     Active Substance: FUROSEMIDE
     Indication: Product used for unknown indication
     Dosage: 40 MG, QD
     Route: 048
     Dates: start: 20220208
  3. DANAZOL [Concomitant]
     Active Substance: DANAZOL
     Indication: Product used for unknown indication
     Dosage: 200 MG, Q12H
     Route: 048
     Dates: start: 20190201
  4. ASPIRIN [Concomitant]
     Active Substance: ASPIRIN
     Indication: Product used for unknown indication
     Dosage: 100 MG, QD (30 TABLETS (PVC- ALUMINUM))
     Route: 048
     Dates: start: 20210202
  5. LINAGLIPTIN [Concomitant]
     Active Substance: LINAGLIPTIN
     Indication: Product used for unknown indication
     Dosage: 5 MG, QD (30 TABLETS)
     Route: 048
     Dates: start: 20210604
  6. CALCIFEDIOL [Concomitant]
     Active Substance: CALCIFEDIOL
     Indication: Product used for unknown indication
     Dosage: 0.26 MG, Q15D (10 CAPSULAS (BLISTER PVC/PVDC-ALUMINIO))
     Route: 048
     Dates: start: 20210526
  7. AMLODIPINE BESYLATE [Concomitant]
     Active Substance: AMLODIPINE BESYLATE
     Indication: Product used for unknown indication
     Dosage: 5 MG, QD (30 COMPRIMIDOS)
     Route: 048
     Dates: start: 20210302
  8. BISOPROLOL FUMARATE [Concomitant]
     Active Substance: BISOPROLOL FUMARATE
     Indication: Product used for unknown indication
     Dosage: 2.5 MG, QD (28 COMPRIMIDOS)
     Route: 048
     Dates: start: 20210202
  9. BUDESONIDE [Concomitant]
     Active Substance: BUDESONIDE
     Indication: Product used for unknown indication
     Dosage: 200 UG, Q12H (1 INHALADOR DE 200 DOSIS)
     Route: 048
     Dates: start: 20180621
  10. PANTOPRAZOL NORMON [Concomitant]
     Indication: Product used for unknown indication
     Dosage: 20 MG, QD (28 COMPRIMIDOS (BLISTER))
     Route: 048
     Dates: start: 20130528
  11. GLYCOPYRRONIUM\INDACATEROL [Concomitant]
     Active Substance: GLYCOPYRRONIUM\INDACATEROL
     Indication: Product used for unknown indication
     Dosage: 1 DOSAGE FORM, QD (85MCG/43MCG POLVO PARA INHALACION (CAPSULA DURA) ENVASE 30 CAPSULAS + 1 INHALADOR
     Dates: start: 20180404
  12. VENTOLIN [Concomitant]
     Active Substance: ALBUTEROL SULFATE
     Indication: Product used for unknown indication
     Dosage: 100 UG, Q8H (1 INHALADOR DE 200 DOSIS)
     Dates: start: 20140520

REACTIONS (1)
  - Myoclonus [Recovered/Resolved]

NARRATIVE: CASE EVENT DATE: 20220804
